FAERS Safety Report 9788495 (Version 1)
Quarter: 2013Q4

REPORT INFORMATION
  Report Type: Spontaneous
  Country: MY (occurrence: MY)
  Receive Date: 20131230
  Receipt Date: 20131230
  Transmission Date: 20140711
  Serious: Yes (Other)
  Sender: FDA-Public Use
  Company Number: MY-EISAI INC-E3810-06839-SPO-MY

PATIENT
  Sex: Female

DRUGS (1)
  1. ACIPHEX (RABEPRAZOLE) [Suspect]
     Indication: GASTRITIS
     Route: 048

REACTIONS (2)
  - Pruritus [Unknown]
  - Rash [Unknown]
